FAERS Safety Report 7293775-8 (Version None)
Quarter: 2011Q1

REPORT INFORMATION
  Report Type: 
  Country: None (occurrence: None)
  Receive Date: 20110215
  Receipt Date: 20110210
  Transmission Date: 20110831
  Serious: Yes (Other)
  Sender: FDA-Public Use
  Company Number: US-CEPHALON-2010006183

PATIENT
  Sex: Male

DRUGS (1)
  1. TREANDA [Suspect]
     Indication: MANTLE CELL LYMPHOMA RECURRENT
     Route: 041
     Dates: start: 20100801, end: 20100901

REACTIONS (2)
  - CHOROIDAL NEOVASCULARISATION [None]
  - MANTLE CELL LYMPHOMA RECURRENT [None]
